FAERS Safety Report 9275905 (Version 1)
Quarter: 2013Q2

REPORT INFORMATION
  Report Type: Spontaneous
  Country: US (occurrence: US)
  Receive Date: 20130507
  Receipt Date: 20130507
  Transmission Date: 20140414
  Serious: No
  Sender: FDA-Public Use
  Company Number: US-009507513-1305USA002626

PATIENT
  Sex: Female
  Weight: 56.24 kg

DRUGS (4)
  1. IMPLANON [Suspect]
     Indication: CONTRACEPTION
     Dosage: EVERY 3 YEARS, 1 ROD
     Route: 059
     Dates: start: 20130420
  2. LASIX (FUROSEMIDE) [Concomitant]
  3. POTASSIUM (UNSPECIFIED) [Concomitant]
  4. DOXYCYCLINE [Concomitant]

REACTIONS (2)
  - Menstruation irregular [Unknown]
  - Implant site pain [Unknown]
